FAERS Safety Report 4596311-X (Version None)
Quarter: 2005Q1

REPORT INFORMATION
  Report Type: 
  Country: None (occurrence: None)
  Receive Date: 20050224
  Receipt Date: 20050208
  Transmission Date: 20050727
  Serious: No
  Sender: FDA-Public Use
  Company Number: 2005GB00282

PATIENT
  Age: 45 Year
  Sex: Female
  Weight: 44 kg

DRUGS (2)
  1. ZOLADEX [Suspect]
     Indication: MENSTRUAL DISORDER
     Dosage: 3.6 MG Q4WK SQ
     Route: 058
  2. PREDNISOLONE [Concomitant]

REACTIONS (2)
  - EATING DISORDER [None]
  - STOMACH DISCOMFORT [None]
